FAERS Safety Report 6967206-9 (Version None)
Quarter: 2010Q3

REPORT INFORMATION
  Report Type: 
  Country: None (occurrence: None)
  Receive Date: 20100907
  Receipt Date: 20100825
  Transmission Date: 20110219
  Serious: Yes (Hospitalization)
  Sender: FDA-Public Use
  Company Number: US-JNJFOC-20100808999

PATIENT
  Sex: Female
  Weight: 112.49 kg

DRUGS (9)
  1. DURAGESIC-100 [Suspect]
     Indication: PAIN IN EXTREMITY
     Route: 062
  2. DURAGESIC-100 [Suspect]
     Indication: BACK PAIN
     Route: 062
  3. FENTANYL CITRATE [Suspect]
     Indication: BACK PAIN
     Route: 062
  4. FENTANYL CITRATE [Suspect]
     Route: 062
  5. FENTANYL CITRATE [Suspect]
     Indication: PAIN IN EXTREMITY
     Route: 062
  6. FENTANYL CITRATE [Suspect]
     Route: 062
  7. HYDROCODONE [Concomitant]
     Indication: PAIN
     Dosage: 10-325MG TWICE DAY
     Route: 048
  8. NEXIUM [Concomitant]
     Indication: DYSPEPSIA
     Route: 048
  9. ALBUTEROL [Concomitant]
     Indication: CHRONIC OBSTRUCTIVE PULMONARY DISEASE
     Route: 055

REACTIONS (16)
  - ABDOMINAL PAIN UPPER [None]
  - DEPRESSION [None]
  - DIABETES MELLITUS [None]
  - DRUG ADMINISTERED AT INAPPROPRIATE SITE [None]
  - DYSURIA [None]
  - FIBROMYALGIA [None]
  - HYPERTENSION [None]
  - INAPPROPRIATE SCHEDULE OF DRUG ADMINISTRATION [None]
  - INSOMNIA [None]
  - PAIN IN EXTREMITY [None]
  - PRODUCT QUALITY ISSUE [None]
  - RESTLESSNESS [None]
  - STRESS [None]
  - THINKING ABNORMAL [None]
  - TREMOR [None]
  - VOMITING [None]
